FAERS Safety Report 9642866 (Version 2)
Quarter: 2014Q2

REPORT INFORMATION
  Report Type: Spontaneous
  Country: US (occurrence: US)
  Receive Date: 20131024
  Receipt Date: 20140408
  Transmission Date: 20141212
  Serious: Yes (Other)
  Sender: FDA-Public Use
  Company Number: US-ASTELLAS-2013US010914

PATIENT
  Age: 89 Year
  Sex: Female

DRUGS (3)
  1. MYRBETRIQ [Suspect]
     Indication: URGE INCONTINENCE
     Dosage: 25 MG, UID/QD
     Route: 048
     Dates: start: 20130913, end: 20130923
  2. ATENOLOL [Concomitant]
     Indication: HYPERTENSION
     Dosage: 25 MG, UNKNOWN/D
     Route: 065
  3. ASPIRIN [Concomitant]
     Indication: PRODUCT USED FOR UNKNOWN INDICATION
     Dosage: UNK
     Route: 065
     Dates: end: 201309

REACTIONS (1)
  - Transient ischaemic attack [Recovered/Resolved]
